FAERS Safety Report 6426260-3 (Version None)
Quarter: 2009Q4

REPORT INFORMATION
  Report Type: 
  Country: None (occurrence: None)
  Receive Date: 20091104
  Receipt Date: 20091009
  Transmission Date: 20100525
  Serious: No
  Sender: FDA-Public Use
  Company Number: US-ROCHE-662053

PATIENT
  Sex: Male
  Weight: 19.1 kg

DRUGS (4)
  1. TAMIFLU [Suspect]
     Indication: INFLUENZA
     Dosage: DOSE: 75/5ML -3 3/4 ML TAKEN TWICE IN THE DAY (WRONG DOSE)
     Route: 048
     Dates: start: 20091008, end: 20091008
  2. TAMIFLU [Suspect]
     Dosage: DOSE CORRECTED TO 60/5ML- 3 3/4 ML TAKEN TWICE DAILY
     Route: 048
     Dates: start: 20091009
  3. VITAMIN [Concomitant]
     Dosage: DRUG:OTC VITAMIN
  4. TYLENOL [Concomitant]
     Route: 048

REACTIONS (2)
  - INCORRECT DOSE ADMINISTERED [None]
  - VOMITING [None]
